FAERS Safety Report 16879654 (Version 1)
Quarter: 2019Q4

REPORT INFORMATION
  Report Type: Spontaneous
  Country: IN (occurrence: IN)
  Receive Date: 20191003
  Receipt Date: 20191003
  Transmission Date: 20200122
  Serious: Yes (Hospitalization, Other)
  Sender: FDA-Public Use
  Company Number: IN-VISTAPHARM, INC.-VER201909-001054

PATIENT
  Age: 45 Year
  Sex: Female

DRUGS (12)
  1. RANITIDINE. [Concomitant]
     Active Substance: RANITIDINE
     Indication: PRODUCT USED FOR UNKNOWN INDICATION
     Dosage: 150 MG TWICE A DAY
  2. CALCIUM LACTATE [Concomitant]
     Active Substance: CALCIUM LACTATE
     Indication: PRODUCT USED FOR UNKNOWN INDICATION
     Dosage: 500 MG, 2 TABLETS/DAY
  3. ALBENDAZOLE. [Concomitant]
     Active Substance: ALBENDAZOLE
     Indication: PRODUCT USED FOR UNKNOWN INDICATION
     Dosage: UNKNOWN
  4. DAPSONE. [Concomitant]
     Active Substance: DAPSONE
     Indication: LEPROSY
     Dosage: 100 MG DAILY
  5. FUSIDIC ACID (2% W/W) CREAM [Concomitant]
     Indication: SKIN EROSION
     Dosage: AFTER APPROPRIATE DILUTION
  6. PREDNISOLONE. [Suspect]
     Active Substance: PREDNISOLONE
     Indication: PRODUCT USED FOR UNKNOWN INDICATION
     Dosage: 30 MG ONCE A DAY
  7. HALOBETASOL AND SALICYLIC ACID LOTION [Concomitant]
     Indication: PRODUCT USED FOR UNKNOWN INDICATION
  8. CETRIMIDE (20% W/V) HAIR WASH [Concomitant]
     Indication: PRODUCT USED FOR UNKNOWN INDICATION
     Dosage: AFTER APPROPRIATE DILUTION
  9. CHOLECALCIFEROL [Concomitant]
     Active Substance: CHOLECALCIFEROL
     Indication: PRODUCT USED FOR UNKNOWN INDICATION
     Dosage: 60,000 IU ONCE A WEEK FOR 4 WEEKS
  10. AMIKACIN. [Concomitant]
     Active Substance: AMIKACIN
     Indication: PNEUMONIA KLEBSIELLA
     Dosage: UNKNOWN
  11. CEFTRIAXONE. [Concomitant]
     Active Substance: CEFTRIAXONE
     Indication: PNEUMONIA KLEBSIELLA
     Dosage: UNKNOWN
  12. RIFAMPICIN [Concomitant]
     Active Substance: RIFAMPIN
     Indication: LEPROSY
     Dosage: 450 MG DAILY

REACTIONS (2)
  - Hypothyroidism [Unknown]
  - Diabetes mellitus [Unknown]
